FAERS Safety Report 5130020-3 (Version None)
Quarter: 2006Q4

REPORT INFORMATION
  Report Type: 
  Country: None (occurrence: None)
  Receive Date: 20061013
  Receipt Date: 20061003
  Transmission Date: 20070319
  Serious: Yes (Hospitalization)
  Sender: FDA-Public Use
  Company Number: 2006120801

PATIENT
  Age: 53 Year
  Sex: Male

DRUGS (9)
  1. DALTEPARIN SODIUM [Suspect]
     Dosage: 15000 I.U. (7500 I.U., 2 IN 1 D), SUBCUTANEOUS
     Route: 058
  2. REOPRO [Suspect]
     Dosage: INTRAVENOUS
     Route: 042
     Dates: start: 20060715
  3. ENOXAPARIN SODIUM [Suspect]
     Dosage: 160 MG (80 MG, 2 IN 1 D), SUBCUTANEOUS
     Route: 058
  4. INSULIN (INSULIN) [Concomitant]
  5. GLUCOPHAGE [Concomitant]
  6. RAMIPRIL [Concomitant]
  7. METOPROLOL TARTRATE [Concomitant]
  8. PLAVIX [Concomitant]
  9. ASPIRIN [Concomitant]

REACTIONS (13)
  - ACUTE MYOCARDIAL INFARCTION [None]
  - AIR EMBOLISM [None]
  - ATRIAL FIBRILLATION [None]
  - CARDIAC DISORDER [None]
  - CARDIOVASCULAR DISORDER [None]
  - CORONARY ARTERY OCCLUSION [None]
  - CORONARY ARTERY RESTENOSIS [None]
  - CORONARY ARTERY STENOSIS [None]
  - ELECTROCARDIOGRAM ST SEGMENT ELEVATION [None]
  - HYPOTONIA [None]
  - PAIN [None]
  - POST PROCEDURAL COMPLICATION [None]
  - THROMBOCYTOPENIA [None]
